FAERS Safety Report 19143216 (Version 1)
Quarter: 2021Q2

REPORT INFORMATION
  Report Type: Spontaneous
  Country: US (occurrence: US)
  Receive Date: 20210416
  Receipt Date: 20210416
  Transmission Date: 20210717
  Serious: No
  Sender: FDA-Public Use
  Company Number: US-ORGANON-O2103USA003160

PATIENT

DRUGS (1)
  1. NEXPLANON [Suspect]
     Active Substance: ETONOGESTREL
     Dosage: 1 DOSAGE FORM (IMPLANT)
     Route: 059

REACTIONS (3)
  - Product quality issue [Unknown]
  - Complication of device insertion [Not Recovered/Not Resolved]
  - No adverse event [Unknown]
